FAERS Safety Report 15814891 (Version 1)
Quarter: 2019Q1

REPORT INFORMATION
  Report Type: Spontaneous
  Country: FR (occurrence: FR)
  Receive Date: 20190111
  Receipt Date: 20190111
  Transmission Date: 20190417
  Serious: Yes (Death, Hospitalization, Other)
  Sender: FDA-Public Use
  Company Number: FR-ACCORD-101318

PATIENT
  Age: 69 Year
  Sex: Male
  Weight: 114 kg

DRUGS (17)
  1. PREVISCAN [Concomitant]
     Dosage: UNK
  2. VOLTAREN [Concomitant]
     Active Substance: DICLOFENAC SODIUM
     Dosage: 75 MG, UNK
  3. TEMERIT [Concomitant]
     Active Substance: NEBIVOLOL
     Dosage: UNK
  4. POLARAMINE [Suspect]
     Active Substance: DEXCHLORPHENIRAMINE MALEATE
     Indication: PRODUCT USED FOR UNKNOWN INDICATION
     Dosage: UNK
     Route: 065
     Dates: start: 20170301, end: 20170301
  5. FOLINIC ACID [Suspect]
     Active Substance: LEUCOVORIN
     Indication: PRODUCT USED FOR UNKNOWN INDICATION
     Dosage: 800 MG, UNK
     Route: 042
     Dates: start: 20170301, end: 20170301
  6. AXELER [Concomitant]
     Active Substance: AMLODIPINE BESYLATE\OLMESARTAN MEDOXOMIL
     Dosage: UNK
  7. ONDANSETRON [Suspect]
     Active Substance: ONDANSETRON
     Indication: PROPHYLAXIS OF NAUSEA AND VOMITING
     Dosage: 8 MG, UNK
     Route: 042
     Dates: start: 20170301, end: 20170301
  8. GINKGO EXTRACT\HEPTAMINOL\TROXERUTIN [Concomitant]
     Active Substance: GINKGO\HEPTAMINOL\TROXERUTIN
     Dosage: UNK
  9. PRAVASTATIN. [Concomitant]
     Active Substance: PRAVASTATIN
     Dosage: UNK
  10. LASILIX [Concomitant]
     Active Substance: FUROSEMIDE
     Dosage: UNK
  11. SOLU-MEDROL [Suspect]
     Active Substance: METHYLPREDNISOLONE SODIUM SUCCINATE
     Indication: PRODUCT USED FOR UNKNOWN INDICATION
     Dosage: 80 MG, UNK
     Route: 042
     Dates: start: 20170301, end: 20170301
  12. INNOVAIR [Concomitant]
     Active Substance: BECLOMETHASONE DIPROPIONATE\FORMOTEROL
     Dosage: UNK
  13. VECTIBIX [Suspect]
     Active Substance: PANITUMUMAB
     Indication: COLORECTAL CANCER
     Dosage: 684 MG, UNK
     Route: 042
     Dates: start: 20170301, end: 20170301
  14. PARIET [Concomitant]
     Active Substance: RABEPRAZOLE SODIUM
     Dosage: 20 MG, UNK
  15. IXPRIM [Concomitant]
     Active Substance: ACETAMINOPHEN\TRAMADOL HYDROCHLORIDE
     Dosage: UNK
  16. CHONDROSULF [Concomitant]
     Active Substance: CHONDROITIN SULFATE (CHICKEN)
     Dosage: UNK
  17. ALLOPURINOL. [Concomitant]
     Active Substance: ALLOPURINOL
     Dosage: UNK

REACTIONS (3)
  - Cardiac arrest [Fatal]
  - Hypoxia [Fatal]
  - Coma [Fatal]

NARRATIVE: CASE EVENT DATE: 20170302
